FAERS Safety Report 4981228-9 (Version None)
Quarter: 2006Q1

REPORT INFORMATION
  Report Type: 
  Country: None (occurrence: None)
  Receive Date: 20060227
  Receipt Date: 20050406
  Transmission Date: 20060701
  Serious: Yes (Other)
  Sender: FDA-Public Use
  Company Number: WAES 0504USA00874

PATIENT
  Sex: Male

DRUGS (2)
  1. ZOCOR [Suspect]
     Dosage: 50MG/DAILY/PO
     Route: 048
     Dates: end: 20050404
  2. NIACIN [Concomitant]

REACTIONS (1)
  - RHABDOMYOLYSIS [None]
